FAERS Safety Report 12829165 (Version 1)
Quarter: 2016Q4

REPORT INFORMATION
  Report Type: Spontaneous
  Country: US (occurrence: US)
  Receive Date: 20161007
  Receipt Date: 20161007
  Transmission Date: 20170207
  Serious: No
  Sender: FDA-Public Use
  Company Number: US-SA-2016SA007951

PATIENT
  Sex: Female

DRUGS (17)
  1. PROTONIX [Concomitant]
     Active Substance: PANTOPRAZOLE SODIUM
     Dosage: DR
  2. ZOLOFT [Concomitant]
     Active Substance: SERTRALINE HYDROCHLORIDE
  3. NORVASC [Concomitant]
     Active Substance: AMLODIPINE BESYLATE
  4. CALCIUM [Concomitant]
     Active Substance: CALCIUM
  5. VITAMIN E [Concomitant]
     Active Substance: .ALPHA.-TOCOPHEROL
     Dosage: DOSE:1000 UNIT(S)
  6. AUBAGIO [Suspect]
     Active Substance: TERIFLUNOMIDE
     Indication: MULTIPLE SCLEROSIS
     Route: 048
     Dates: start: 20151218, end: 20160904
  7. ROPINIROLE. [Concomitant]
     Active Substance: ROPINIROLE
     Dosage: ER 24 H
  8. BACLOFEN. [Concomitant]
     Active Substance: BACLOFEN
  9. VITAMIN D3 [Concomitant]
     Active Substance: CHOLECALCIFEROL
     Dosage: DOSE:1000 UNIT(S)
  10. LIPITOR [Concomitant]
     Active Substance: ATORVASTATIN CALCIUM
  11. POTASSIUM CHLORIDE. [Concomitant]
     Active Substance: POTASSIUM CHLORIDE
  12. METHOTREXATE. [Concomitant]
     Active Substance: METHOTREXATE
  13. XANAX [Concomitant]
     Active Substance: ALPRAZOLAM
  14. MAGNESIUM [Concomitant]
     Active Substance: MAGNESIUM
  15. ZANTAC [Concomitant]
     Active Substance: RANITIDINE HYDROCHLORIDE
  16. LISINOPRIL. [Concomitant]
     Active Substance: LISINOPRIL
     Dosage: DOSE: 10 M
  17. ASPIRIN. [Concomitant]
     Active Substance: ASPIRIN

REACTIONS (1)
  - Depressed mood [Unknown]
